FAERS Safety Report 12882847 (Version 1)
Quarter: 2016Q4

REPORT INFORMATION
  Report Type: Report from Study
  Country: US (occurrence: US)
  Receive Date: 20161025
  Receipt Date: 20161025
  Transmission Date: 20170207
  Serious: Yes (Hospitalization)
  Sender: FDA-Public Use
  Company Number: US-EISAI MEDICAL RESEARCH-EC-2016-021135

PATIENT
  Sex: Male
  Weight: 59 kg

DRUGS (4)
  1. ANTI EMETIC [Concomitant]
     Active Substance: UNSPECIFIED INGREDIENT
  2. LISINOPRIL. [Concomitant]
     Active Substance: LISINOPRIL
  3. METHADONE [Concomitant]
     Active Substance: METHADONE HYDROCHLORIDE
  4. LENVIMA [Suspect]
     Active Substance: LENVATINIB
     Indication: BRAIN NEOPLASM MALIGNANT
     Route: 048
     Dates: start: 20160923

REACTIONS (6)
  - Fatigue [Unknown]
  - Blood pressure increased [Unknown]
  - Intestinal obstruction [Unknown]
  - Decreased appetite [Unknown]
  - Hiccups [Unknown]
  - Urinary tract infection [Unknown]

NARRATIVE: CASE EVENT DATE: 2016
